FAERS Safety Report 4475171-1 (Version None)
Quarter: 2004Q4

REPORT INFORMATION
  Report Type: 
  Country: None (occurrence: None)
  Receive Date: 20041012
  Receipt Date: 20040930
  Transmission Date: 20050328
  Serious: Yes (Other)
  Sender: FDA-Public Use
  Company Number: 2004236505FR

PATIENT
  Age: 52 Year
  Sex: Male

DRUGS (10)
  1. ALDACTONE [Suspect]
     Indication: CARDIAC FAILURE
     Dosage: SEE IMAGE
     Dates: start: 20031201, end: 20040501
  2. ALDACTONE [Suspect]
     Indication: CARDIAC FAILURE
     Dosage: SEE IMAGE
     Dates: start: 20040501, end: 20040906
  3. HYDROCHLOROTHIAZIDE [Concomitant]
  4. BISOPROLOL FUMARATE [Concomitant]
  5. FULVISTATIN (GRISEOFULVIN) [Concomitant]
  6. POTASSIUM CHLORIDE [Concomitant]
  7. LYSINE ACETYLSLICYLATE [Concomitant]
  8. LERCANIDIPINE [Concomitant]
  9. LANSOPRAZOLE [Concomitant]
  10. BISOPROLOL FUMARATE [Concomitant]

REACTIONS (7)
  - CARDIAC STRESS TEST ABNORMAL [None]
  - DYSAESTHESIA [None]
  - INSOMNIA [None]
  - IRRITABILITY [None]
  - MALAISE [None]
  - PARESIS [None]
  - VASODILATATION [None]
